FAERS Safety Report 19451079 (Version 1)
Quarter: 2021Q2

REPORT INFORMATION
  Report Type: Spontaneous
  Country: FR (occurrence: FR)
  Receive Date: 20210623
  Receipt Date: 20210623
  Transmission Date: 20210717
  Serious: Yes (Other)
  Sender: FDA-Public Use
  Company Number: FR-SUN PHARMACEUTICAL INDUSTRIES LTD-2021RR-301681

PATIENT
  Age: 50 Year
  Sex: Female

DRUGS (4)
  1. OXALIPLATIN. [Suspect]
     Active Substance: OXALIPLATIN
     Indication: COLON CANCER
     Dosage: UNK, FOLFOX
     Route: 065
     Dates: start: 201304
  2. CALCIUM FOLINAT [Suspect]
     Active Substance: LEUCOVORIN CALCIUM
     Indication: COLON CANCER
     Dosage: UNK, FOLFOX
     Route: 065
     Dates: start: 201304
  3. FLUOROURACIL. [Suspect]
     Active Substance: FLUOROURACIL
     Indication: COLON CANCER
     Dosage: UNK, FOLFOX
     Route: 065
     Dates: start: 201304
  4. OXALIPLATIN. [Suspect]
     Active Substance: OXALIPLATIN
     Dosage: 360 MILLIGRAM/SQ. METER, UNK
     Route: 065

REACTIONS (3)
  - Ocular toxicity [Recovered/Resolved]
  - Neuropathy peripheral [Recovered/Resolved]
  - Blindness transient [Recovered/Resolved]
